FAERS Safety Report 16335347 (Version 2)
Quarter: 2019Q4

REPORT INFORMATION
  Report Type: Spontaneous
  Country: NG (occurrence: NG)
  Receive Date: 20190521
  Receipt Date: 20191216
  Transmission Date: 20200122
  Serious: Yes (Hospitalization, Other)
  Sender: FDA-Public Use
  Company Number: NG-IPCA LABORATORIES LIMITED-IPC-2019-NG-000606

PATIENT

DRUGS (3)
  1. TRAMADOL. [Suspect]
     Active Substance: TRAMADOL
     Dosage: 800 MILLIGRAM, QD
     Route: 065
  2. TRAMADOL. [Suspect]
     Active Substance: TRAMADOL
     Dosage: 600 MILLIGRAM, QD
     Route: 065
  3. TRAMADOL. [Suspect]
     Active Substance: TRAMADOL
     Indication: PAIN
     Dosage: 200 MILLIGRAM, QD
     Route: 065

REACTIONS (4)
  - Dizziness [Recovered/Resolved]
  - Drug dependence [Unknown]
  - Hypersomnia [Recovered/Resolved]
  - Intentional product misuse [Unknown]
